FAERS Safety Report 10945637 (Version 2)
Quarter: 2015Q1

REPORT INFORMATION
  Report Type: Spontaneous
  Country: BE (occurrence: BE)
  Receive Date: 20150323
  Receipt Date: 20150327
  Transmission Date: 20150721
  Serious: Yes (Life-Threatening, Hospitalization)
  Sender: FDA-Public Use
  Company Number: BE-PFIZER INC-2015097962

PATIENT
  Age: 70 Year
  Sex: Male
  Weight: 50 kg

DRUGS (13)
  1. RIOPAN [Concomitant]
     Active Substance: MAGALDRATE
     Indication: DYSPEPSIA
     Dosage: 1 DF, 3X/DAY
     Route: 048
  2. MEDROL [Concomitant]
     Active Substance: METHYLPREDNISOLONE
     Indication: IMMUNOSUPPRESSION
     Dosage: 8 MG, 1X/DAY
     Route: 048
     Dates: start: 20141230
  3. VFEND [Suspect]
     Active Substance: VORICONAZOLE
     Indication: ASPERGILLUS INFECTION
     Dosage: 200 MG, 2X/DAY
     Route: 048
     Dates: start: 20150121, end: 20150211
  4. PANTOMED [Concomitant]
     Active Substance: DEXPANTHENOL
     Indication: IMPAIRED GASTRIC EMPTYING
     Dosage: 20 MG, 2X/DAY
     Route: 048
  5. NEORAL [Concomitant]
     Active Substance: CYCLOSPORINE
     Indication: IMMUNOSUPPRESSION
     Dosage: 50 MG, 1X/DAY
     Route: 048
     Dates: start: 20141230
  6. XANAX [Concomitant]
     Active Substance: ALPRAZOLAM
     Indication: SOMNOLENCE
     Dosage: 0.25 MG, 1X/DAY
     Route: 048
     Dates: start: 20150130
  7. SOTALOL. [Concomitant]
     Active Substance: SOTALOL
     Indication: ATRIAL FIBRILLATION
     Dosage: 40 MG, 2X/DAY
     Route: 048
     Dates: start: 20150114, end: 20150211
  8. MOVICOL [Concomitant]
     Active Substance: POLYETHYLENE GLYCOL 3350\POTASSIUM CHLORIDE\SODIUM BICARBONATE\SODIUM CHLORIDE
     Indication: CONSTIPATION
     Dosage: 1 DF, 1X/DAY
     Route: 048
  9. NEORAL [Concomitant]
     Active Substance: CYCLOSPORINE
     Dosage: 25 MG, 1X/DAY
     Route: 048
     Dates: start: 20141230
  10. EUSAPRIM [Concomitant]
     Indication: ANTIFUNGAL PROPHYLAXIS
     Dosage: 800 MG, 3X/WEEK
     Route: 048
     Dates: start: 20141230, end: 20150211
  11. L-THYROXIN [Concomitant]
     Active Substance: LEVOTHYROXINE SODIUM
     Indication: HYPOTHYROIDISM
     Dosage: 50 ?G, 1X/DAY
     Route: 048
  12. CELLCEPT [Concomitant]
     Active Substance: MYCOPHENOLATE MOFETIL\MYCOPHENOLATE MOFETIL HYDROCHLORIDE
     Indication: IMMUNOSUPPRESSION
     Dosage: 500 MG, 2X/DAY
     Route: 048
     Dates: start: 20141230
  13. ZOCOR [Concomitant]
     Active Substance: SIMVASTATIN
     Indication: BLOOD CHOLESTEROL
     Dosage: 20 MG, 1X/DAY
     Route: 048
     Dates: end: 20150211

REACTIONS (4)
  - Weight decreased [Unknown]
  - General physical health deterioration [Unknown]
  - Hepatitis [Unknown]
  - Apathy [Unknown]

NARRATIVE: CASE EVENT DATE: 20150211
